FAERS Safety Report 13197844 (Version 1)
Quarter: 2017Q1

REPORT INFORMATION
  Report Type: Spontaneous
  Country: CH (occurrence: CH)
  Receive Date: 20170208
  Receipt Date: 20170208
  Transmission Date: 20170428
  Serious: Yes (Hospitalization)
  Sender: FDA-Public Use
  Company Number: CH-009507513-1701CHE014544

PATIENT
  Age: 66 Year
  Sex: Male
  Weight: 63.8 kg

DRUGS (6)
  1. ZEPATIER [Suspect]
     Active Substance: ELBASVIR\GRAZOPREVIR
     Indication: HEPATITIS C
     Dosage: 1 TABLET, QD
     Route: 048
     Dates: start: 20161207
  2. KETALGIN (METHADONE HYDROCHLORIDE) [Concomitant]
     Dosage: 80-100 MG PER DAY, REPLACEMENT THERAPY
     Route: 048
  3. APIDRA [Concomitant]
     Active Substance: INSULIN GLULISINE
     Dosage: GLYCAEMIC ADJUSTMENTS AS REQUIRED
     Route: 058
  4. TENORMIN [Concomitant]
     Active Substance: ATENOLOL
     Dosage: 5 MG, QD
     Route: 048
  5. LANTUS [Concomitant]
     Active Substance: INSULIN GLARGINE
     Dosage: 10 IU, QD
     Route: 058
  6. ASPIRIN CARDIO [Concomitant]
     Active Substance: ASPIRIN
     Dosage: 100 MG, QD
     Route: 048

REACTIONS (1)
  - Acute myocardial infarction [Recovered/Resolved]

NARRATIVE: CASE EVENT DATE: 20170117
